FAERS Safety Report 12073495 (Version 1)
Quarter: 2016Q1

REPORT INFORMATION
  Report Type: Spontaneous
  Country: CH (occurrence: CH)
  Receive Date: 20160212
  Receipt Date: 20160212
  Transmission Date: 20160526
  Serious: Yes (Death, Hospitalization)
  Sender: FDA-Public Use
  Company Number: CH-JNJFOC-20160206807

PATIENT
  Age: 82 Year
  Sex: Male
  Weight: 78 kg

DRUGS (11)
  1. ARCOXIA [Concomitant]
     Active Substance: ETORICOXIB
     Indication: ARTHRALGIA
     Route: 048
     Dates: start: 20151210
  2. AUGMENTIN [Suspect]
     Active Substance: AMOXICILLIN\CLAVULANATE POTASSIUM
     Indication: IMPAIRED HEALING
     Route: 048
     Dates: start: 20151229, end: 20160105
  3. ZINACEF [Suspect]
     Active Substance: CEFUROXIME SODIUM
     Indication: LYMPHADENECTOMY
     Route: 041
     Dates: start: 20151214, end: 20151216
  4. DAFALGAN [Suspect]
     Active Substance: ACETAMINOPHEN
     Indication: LYMPHADENECTOMY
     Route: 048
     Dates: end: 20160105
  5. METAMIZOLE SODIUM [Concomitant]
     Active Substance: METAMIZOLE SODIUM
     Indication: LYMPHADENECTOMY
     Route: 048
     Dates: start: 20151214, end: 20151221
  6. DICLOFENAC SODIUM. [Concomitant]
     Active Substance: DICLOFENAC SODIUM
     Indication: ARTHRALGIA
     Route: 061
     Dates: start: 20151210
  7. NOVALGIN [Concomitant]
     Active Substance: METAMIZOLE SODIUM
     Indication: LYMPHADENECTOMY
     Route: 041
     Dates: start: 20151214, end: 20151221
  8. METOPROLOL SUCCINATE. [Suspect]
     Active Substance: METOPROLOL SUCCINATE
     Indication: ATRIAL FIBRILLATION
     Route: 048
  9. XARELTO [Suspect]
     Active Substance: RIVAROXABAN
     Indication: CEREBROVASCULAR ACCIDENT PROPHYLAXIS
     Route: 048
     Dates: end: 20160115
  10. XARELTO [Suspect]
     Active Substance: RIVAROXABAN
     Indication: ATRIAL FIBRILLATION
     Route: 048
     Dates: end: 20160115
  11. ZINAT [Suspect]
     Active Substance: CEFUROXIME AXETIL
     Indication: LYMPHADENECTOMY
     Route: 048
     Dates: start: 20151217, end: 20151220

REACTIONS (6)
  - Acute kidney injury [Fatal]
  - Abdominal pain upper [Not Recovered/Not Resolved]
  - Lactic acidosis [Fatal]
  - Hepatitis cholestatic [Fatal]
  - Hepatic failure [Fatal]
  - Hepatomegaly [Not Recovered/Not Resolved]

NARRATIVE: CASE EVENT DATE: 201601
